FAERS Safety Report 4588068-3 (Version None)
Quarter: 2005Q1

REPORT INFORMATION
  Report Type: 
  Country: None (occurrence: None)
  Receive Date: 20050216
  Receipt Date: 20050126
  Transmission Date: 20050727
  Serious: Yes (Life-Threatening)
  Sender: FDA-Public Use
  Company Number: JP_050105622

PATIENT
  Age: 66 Year
  Sex: Female

DRUGS (8)
  1. EVISTA [Suspect]
     Indication: OSTEOPOROSIS
     Dates: start: 20041118, end: 20050114
  2. BUFFERIN [Concomitant]
  3. PRAVASTATIN SODIUM [Concomitant]
  4. FLUVOXAMINE MALEATE [Concomitant]
  5. DESYREL [Concomitant]
  6. NICARPINE            (NICARDIPINE HYDROCHLORIDE) [Concomitant]
  7. STOMIN A [Concomitant]
  8. METHYCOBAL           (MECOBALAMIN) [Concomitant]

REACTIONS (3)
  - ATRIOVENTRICULAR BLOCK COMPLETE [None]
  - BRADYCARDIA [None]
  - MYOCARDIAL RUPTURE [None]
